FAERS Safety Report 5431547-7 (Version None)
Quarter: 2007Q3

REPORT INFORMATION
  Report Type: 
  Country: None (occurrence: None)
  Receive Date: 20070830
  Receipt Date: 20070810
  Transmission Date: 20080115
  Serious: Yes (Other)
  Sender: FDA-Public Use
  Company Number: US-ASTRAZENECA-2007UW20085

PATIENT
  Age: 48 Year
  Sex: Female

DRUGS (10)
  1. SEROQUEL [Suspect]
     Route: 048
  2. SEROQUEL [Suspect]
     Route: 048
  3. SEROQUEL [Suspect]
     Route: 048
  4. NARVANE [Concomitant]
  5. LITHIUM CARBONATE [Concomitant]
  6. LITHIUM CARBONATE [Concomitant]
  7. ALBUTEROL [Concomitant]
     Dosage: TWO PUFFS EVERY FOUR HOURS WHILE AWAKE
  8. AVANDI [Concomitant]
  9. BECONASE [Concomitant]
     Route: 045
  10. ASMACORT [Concomitant]
     Dosage: TWO PUFFS

REACTIONS (1)
  - EXTRASYSTOLES [None]
